FAERS Safety Report 12469219 (Version 1)
Quarter: 2016Q2

REPORT INFORMATION
  Report Type: Spontaneous
  Country: US (occurrence: US)
  Receive Date: 20160615
  Receipt Date: 20160615
  Transmission Date: 20160815
  Serious: Yes (Other)
  Sender: FDA-Public Use
  Company Number: US-PFIZER INC-2016295372

PATIENT
  Age: 39 Year
  Sex: Male

DRUGS (12)
  1. ISONIAZID. [Suspect]
     Active Substance: ISONIAZID
     Indication: MENINGITIS TUBERCULOUS
     Dosage: UNK
  2. TENOFOVIR [Concomitant]
     Active Substance: TENOFOVIR
     Indication: ANTIRETROVIRAL THERAPY
     Dosage: UNK
  3. RIFABUTIN. [Suspect]
     Active Substance: RIFABUTIN
     Indication: MENINGITIS TUBERCULOUS
     Dosage: UNK
  4. EMTRICITABINE [Concomitant]
     Active Substance: EMTRICITABINE
     Indication: ANTIRETROVIRAL THERAPY
     Dosage: UNK
  5. VANCOMYCIN [Concomitant]
     Active Substance: VANCOMYCIN
     Dosage: UNK
  6. CEFTRIAXONE. [Concomitant]
     Active Substance: CEFTRIAXONE
     Dosage: UNK
  7. ACYCLOVIR. [Concomitant]
     Active Substance: ACYCLOVIR
     Indication: ANTIRETROVIRAL THERAPY
     Dosage: UNK
  8. PYRAZINAMIDE. [Suspect]
     Active Substance: PYRAZINAMIDE
     Indication: MENINGITIS TUBERCULOUS
     Dosage: UNK
  9. AMPICILLIN [Concomitant]
     Active Substance: AMPICILLIN
     Dosage: UNK
  10. LEVOFLOXACIN. [Suspect]
     Active Substance: LEVOFLOXACIN
     Indication: MENINGITIS TUBERCULOUS
     Dosage: UNK
  11. PREDNISONE. [Suspect]
     Active Substance: PREDNISONE
     Indication: MENINGITIS TUBERCULOUS
     Dosage: UNK
  12. RALTEGRAVIR. [Concomitant]
     Active Substance: RALTEGRAVIR
     Indication: ANTIRETROVIRAL THERAPY
     Dosage: UNK

REACTIONS (2)
  - Hyponatraemia [Unknown]
  - Drug ineffective [Unknown]
